FAERS Safety Report 16447836 (Version 1)
Quarter: 2019Q2

REPORT INFORMATION
  Report Type: Spontaneous
  Country: BR (occurrence: BR)
  Receive Date: 20190619
  Receipt Date: 20190619
  Transmission Date: 20190711
  Serious: Yes (Death, Other)
  Sender: FDA-Public Use
  Company Number: BR-ASTRAZENECA-2019SE88391

PATIENT
  Sex: Female

DRUGS (2)
  1. OLAPARIB. [Suspect]
     Active Substance: OLAPARIB
     Indication: OVARIAN CANCER
     Route: 048
  2. OLAPARIB. [Suspect]
     Active Substance: OLAPARIB
     Indication: OVARIAN CANCER
     Route: 048

REACTIONS (2)
  - Myelodysplastic syndrome [Fatal]
  - Pancytopenia [Recovered/Resolved]
